FAERS Safety Report 19766205 (Version 5)
Quarter: 2022Q1

REPORT INFORMATION
  Report Type: Report from Study
  Country: US (occurrence: US)
  Receive Date: 20210830
  Receipt Date: 20220224
  Transmission Date: 20220424
  Serious: Yes (Hospitalization, Other)
  Sender: FDA-Public Use
  Company Number: US-SHIRE-US202017078

PATIENT
  Sex: Female
  Weight: 146 kg

DRUGS (32)
  1. HUMAN IMMUNOGLOBULIN G\HYALURONIDASE RECOMBINANT HUMAN [Suspect]
     Active Substance: HUMAN IMMUNOGLOBULIN G\HYALURONIDASE RECOMBINANT HUMAN
     Indication: Hypogammaglobulinaemia
     Dosage: 50 GRAM
     Route: 065
  2. HUMAN IMMUNOGLOBULIN G\HYALURONIDASE RECOMBINANT HUMAN [Suspect]
     Active Substance: HUMAN IMMUNOGLOBULIN G\HYALURONIDASE RECOMBINANT HUMAN
     Indication: Immunodeficiency
     Dosage: 50 GRAM, Q4WEEKS
     Route: 058
     Dates: start: 20151228
  3. HUMAN IMMUNOGLOBULIN G\HYALURONIDASE RECOMBINANT HUMAN [Suspect]
     Active Substance: HUMAN IMMUNOGLOBULIN G\HYALURONIDASE RECOMBINANT HUMAN
     Indication: Primary immunodeficiency syndrome
  4. DIPHENHYDRAMINE [Concomitant]
     Active Substance: DIPHENHYDRAMINE
  5. EPINEPHRINE [Concomitant]
     Active Substance: EPINEPHRINE
  6. SODIUM CHLORIDE [Concomitant]
     Active Substance: SODIUM CHLORIDE
  7. BUSPIRONE HCL [Concomitant]
     Active Substance: BUSPIRONE HYDROCHLORIDE
  8. TRAZODONE HCL [Concomitant]
     Active Substance: TRAZODONE HYDROCHLORIDE
  9. BOTOX [Concomitant]
     Active Substance: ONABOTULINUMTOXINA
  10. INJECTAFER [Concomitant]
     Active Substance: FERRIC CARBOXYMALTOSE
  11. SYNTHROID [Concomitant]
     Active Substance: LEVOTHYROXINE SODIUM
  12. ASPIRIN [Concomitant]
     Active Substance: ASPIRIN
  13. ACETAMINOPHEN [Concomitant]
     Active Substance: ACETAMINOPHEN
  14. CETIRIZINE HYDROCHLORIDE [Concomitant]
     Active Substance: CETIRIZINE HYDROCHLORIDE
  15. VITAMINS [Concomitant]
     Active Substance: VITAMINS
  16. NUEDEXTA [Concomitant]
     Active Substance: DEXTROMETHORPHAN HYDROBROMIDE\QUINIDINE SULFATE
  17. ADDERALL [Concomitant]
     Active Substance: AMPHETAMINE ASPARTATE\AMPHETAMINE SULFATE\DEXTROAMPHETAMINE SACCHARATE\DEXTROAMPHETAMINE SULFATE
  18. NEXIUM [Concomitant]
     Active Substance: ESOMEPRAZOLE MAGNESIUM
  19. HYQVIA [Concomitant]
     Active Substance: HUMAN IMMUNOGLOBULIN G\HYALURONIDASE RECOMBINANT HUMAN
  20. SEROQUEL [Concomitant]
     Active Substance: QUETIAPINE FUMARATE
  21. VITAMIN 15 [Concomitant]
  22. ZYRTEC DAIICHI [Concomitant]
  23. PATANOL [Concomitant]
     Active Substance: OLOPATADINE HYDROCHLORIDE
  24. DIFFERINE [Concomitant]
  25. DOK [Concomitant]
     Active Substance: DOCUSATE SODIUM
  26. SODIUM CHLORIDE [Concomitant]
     Active Substance: SODIUM CHLORIDE
  27. UNSPECIFIED INGREDIENT [Concomitant]
     Active Substance: UNSPECIFIED INGREDIENT
  28. PROPRANOLOL [Concomitant]
     Active Substance: PROPRANOLOL HYDROCHLORIDE
  29. VIIBRYD [Concomitant]
     Active Substance: VILAZODONE HYDROCHLORIDE
  30. Lmx [Concomitant]
     Route: 065
  31. NABUMETONE [Concomitant]
     Active Substance: NABUMETONE
     Route: 065
  32. VITAMIN D [Concomitant]
     Active Substance: VITAMIN D NOS
     Route: 065

REACTIONS (16)
  - Cardiac pacemaker replacement [Unknown]
  - Cerebrovascular accident [Unknown]
  - Spinal fracture [Unknown]
  - Weight increased [Unknown]
  - Red blood cell abnormality [Unknown]
  - Blood iron decreased [Recovering/Resolving]
  - Sinusitis [Unknown]
  - Asthenia [Unknown]
  - Suspected COVID-19 [Unknown]
  - Fatigue [Unknown]
  - Dyspnoea [Unknown]
  - Palpitations [Unknown]
  - Postural orthostatic tachycardia syndrome [Unknown]
  - Fall [Unknown]
  - Influenza [Unknown]
  - Back pain [Unknown]
